FAERS Safety Report 21070937 (Version 1)
Quarter: 2022Q3

REPORT INFORMATION
  Report Type: Report from Study
  Country: CO (occurrence: CO)
  Receive Date: 20220712
  Receipt Date: 20220712
  Transmission Date: 20221027
  Serious: Yes (Death, Other)
  Sender: FDA-Public Use
  Company Number: CO-AstraZeneca-2022A251319

PATIENT
  Age: 0 Year
  Sex: Male

DRUGS (1)
  1. SYNAGIS [Suspect]
     Active Substance: PALIVIZUMAB
     Indication: Respiratory disorder
     Dates: start: 20220613

REACTIONS (1)
  - Death [Fatal]

NARRATIVE: CASE EVENT DATE: 20220703
